FAERS Safety Report 25454014 (Version 1)
Quarter: 2025Q2

REPORT INFORMATION
  Report Type: Spontaneous
  Country: ES (occurrence: None)
  Receive Date: 20250619
  Receipt Date: 20250619
  Transmission Date: 20250716
  Serious: Yes (Other)
  Sender: MDD OPERATIONS
  Company Number: ES-MDD US Operations-MDD202506-002178

PATIENT
  Age: 78 Year
  Sex: Female

DRUGS (2)
  1. APOMORPHINE HYDROCHLORIDE [Suspect]
     Active Substance: APOMORPHINE HYDROCHLORIDE
     Indication: Product used for unknown indication
     Route: 058
     Dates: start: 20250605, end: 20250605
  2. APOMORPHINE HYDROCHLORIDE [Suspect]
     Active Substance: APOMORPHINE HYDROCHLORIDE
     Route: 058
     Dates: start: 20250605, end: 20250605

REACTIONS (3)
  - Bradycardia [Unknown]
  - Haemodynamic instability [Unknown]
  - Syncope [Unknown]

NARRATIVE: CASE EVENT DATE: 20250605
